FAERS Safety Report 15347920 (Version 1)
Quarter: 2018Q3

REPORT INFORMATION
  Report Type: Spontaneous
  Country: PK (occurrence: PK)
  Receive Date: 20180904
  Receipt Date: 20180904
  Transmission Date: 20181010
  Serious: Yes (Other)
  Sender: FDA-Public Use
  Company Number: PK-AKORN PHARMACEUTICALS-2018AKN01299

PATIENT
  Age: 11 Month
  Sex: Male

DRUGS (1)
  1. TRIAMCINOLONE ACETONIDE. [Suspect]
     Active Substance: TRIAMCINOLONE ACETONIDE
     Indication: RASH GENERALISED
     Route: 061

REACTIONS (3)
  - Cushing^s syndrome [Recovered/Resolved]
  - Metabolic alkalosis [Recovered/Resolved]
  - Hepatomegaly [Recovered/Resolved]
